FAERS Safety Report 11340449 (Version 1)
Quarter: 2015Q3

REPORT INFORMATION
  Report Type: Spontaneous
  Country: US (occurrence: None)
  Receive Date: 20150803
  Receipt Date: 20150803
  Transmission Date: 20151125
  Serious: Yes (Other)
  Sender: FDA-Public Use
  Company Number: KAD201507-002446

PATIENT
  Age: 33 Year
  Sex: Female
  Weight: 61.68 kg

DRUGS (12)
  1. IBUPROFEN (IBUPROFEN) [Concomitant]
     Active Substance: IBUPROFEN
  2. ATIVAN [Concomitant]
     Active Substance: LORAZEPAM
  3. AMBIEN [Concomitant]
     Active Substance: ZOLPIDEM TARTRATE
  4. MECLIZINE (MECLIZINE) [Concomitant]
  5. LORAZEPAM (LORAZEPAM) [Concomitant]
     Active Substance: LORAZEPAM
  6. LIDOCAINE (LIDOCAINE) [Concomitant]
     Active Substance: LIDOCAINE
  7. NIZORAL [Concomitant]
     Active Substance: KETOCONAZOLE
  8. VIEKIRA PAK [Suspect]
     Active Substance: DASABUVIR\OMBITASVIR\PARITAPREVIR\RITONAVIR
     Indication: HEPATITIS C
     Route: 048
     Dates: start: 20150518
  9. BUTALBITAL (APAP-CAFFEINE (AXOTAL)) (CFFEINE, BUTALBITAL, PARACETAMOL) [Concomitant]
  10. RIBAVIRIN (RIBAVIRIN) [Suspect]
     Active Substance: RIBAVIRIN
     Indication: HEPATITIS C
     Route: 048
     Dates: start: 20150518
  11. CELEBREX [Concomitant]
     Active Substance: CELECOXIB
  12. ZOLPIDEM (ZOLPIDEM) [Concomitant]
     Active Substance: ZOLPIDEM TARTRATE

REACTIONS (8)
  - Drug abuser [None]
  - Seizure [None]
  - Fall [None]
  - Ageusia [None]
  - Hypophagia [None]
  - Loss of consciousness [None]
  - White blood cell count increased [None]
  - Tongue injury [None]

NARRATIVE: CASE EVENT DATE: 20150722
